FAERS Safety Report 4314645-0 (Version None)
Quarter: 2004Q1

REPORT INFORMATION
  Report Type: 
  Country: None (occurrence: None)
  Receive Date: 20040308
  Receipt Date: 20040223
  Transmission Date: 20041129
  Serious: Yes (Hospitalization)
  Sender: FDA-Public Use
  Company Number: CIP04000419

PATIENT
  Age: 82 Year
  Sex: Male

DRUGS (10)
  1. BENET(RISEDRONATE SODIUM) TABLET, 2.5MG [Suspect]
     Indication: OSTEOPOROSIS
     Dosage: 2.5 MG DAILY, ORAL
     Route: 048
     Dates: start: 20030909, end: 20040203
  2. ALFACALCIDOL(ALFACALCIDOL) [Suspect]
     Indication: OSTEOPOROSIS
     Dosage: 0.5 MICROG, ORAL
     Route: 048
     Dates: start: 20030909, end: 20040203
  3. SOLETON(ZALTOPROFEN) [Suspect]
     Indication: OSTEOPOROSIS
     Dosage: 80 MG, ORAL
     Route: 048
     Dates: start: 20030909, end: 20040203
  4. SOLON(SOFALCONE) [Suspect]
     Indication: GASTRITIS
     Dosage: 50 MG, ORAL
     Route: 048
     Dates: start: 20030909, end: 20040203
  5. EPERISONE HYDROCHLORIDE(EPERISONE HYDROCHLORIDE) [Suspect]
     Indication: OSTEOPOROSIS
     Dosage: 50 MG, ORAL
     Route: 048
     Dates: start: 20030909, end: 20040203
  6. RHYTHMY(RILMAZAFONE) [Suspect]
     Indication: INSOMNIA
     Dosage: 2 MG, ORAL
     Route: 048
     Dates: start: 20031112, end: 20040203
  7. LASIX [Concomitant]
  8. BLOPRESS(CANDESARTAN CILEXETIL) [Concomitant]
  9. ALTAT(ROXATIDINE ACETATE HYDROCHLORIDE) [Concomitant]
  10. ASPENON(APRINDINE HYDROCHLORIDE) [Concomitant]

REACTIONS (16)
  - ALANINE AMINOTRANSFERASE INCREASED [None]
  - ASPARTATE AMINOTRANSFERASE INCREASED [None]
  - BLOOD ALKALINE PHOSPHATASE INCREASED [None]
  - BLOOD LACTATE DEHYDROGENASE INCREASED [None]
  - BLOOD POTASSIUM DECREASED [None]
  - BLOOD UREA INCREASED [None]
  - CONDITION AGGRAVATED [None]
  - EOSINOPHIL COUNT INCREASED [None]
  - GAMMA-GLUTAMYLTRANSFERASE DECREASED [None]
  - GAMMA-GLUTAMYLTRANSFERASE INCREASED [None]
  - GRANULOCYTOPENIA [None]
  - HEPATIC FUNCTION ABNORMAL [None]
  - HYPOTENSION [None]
  - MONOCYTE COUNT INCREASED [None]
  - PANCYTOPENIA [None]
  - PROTHROMBIN LEVEL INCREASED [None]
